FAERS Safety Report 7559589-6 (Version None)
Quarter: 2011Q2

REPORT INFORMATION
  Report Type: 
  Country: None (occurrence: None)
  Receive Date: 20110621
  Receipt Date: 20110620
  Transmission Date: 20111010
  Serious: Yes (Other)
  Sender: FDA-Public Use
  Company Number: GB-TEVA-287102ISR

PATIENT

DRUGS (1)
  1. PHENYTOIN [Suspect]

REACTIONS (2)
  - DRUG LEVEL FLUCTUATING [None]
  - FOOD INTERACTION [None]
